FAERS Safety Report 5710167-0 (Version None)
Quarter: 2008Q2

REPORT INFORMATION
  Report Type: 
  Country: None (occurrence: None)
  Receive Date: 20080418
  Receipt Date: 20080111
  Transmission Date: 20081010
  Serious: No
  Sender: FDA-Public Use
  Company Number: US-ASTRAZENECA-2008UW00782

PATIENT
  Age: 71 Year
  Sex: Female
  Weight: 62.6 kg

DRUGS (12)
  1. METOPROLOL SUCCINATE [Suspect]
     Route: 048
     Dates: start: 20071105
  2. HYZAAR [Concomitant]
  3. VYTORIN [Concomitant]
  4. PREMARIN [Concomitant]
  5. PROGESTERONE [Concomitant]
  6. COQ10 [Concomitant]
  7. CENTRUM SILVER [Concomitant]
  8. ASCORBIC ACID [Concomitant]
  9. OSCAL [Concomitant]
  10. VITAMIN E [Concomitant]
  11. ZINC [Concomitant]
  12. CINNAMON [Concomitant]
     Indication: BLOOD GLUCOSE ABNORMAL

REACTIONS (1)
  - BLOOD PRESSURE FLUCTUATION [None]
